FAERS Safety Report 24314063 (Version 1)
Quarter: 2024Q3

REPORT INFORMATION
  Report Type: Spontaneous
  Country: US (occurrence: US)
  Receive Date: 20240912
  Receipt Date: 20240912
  Transmission Date: 20241017
  Serious: Yes (Death, Other)
  Sender: BIOGEN
  Company Number: US-BIOGEN-2024BI01281510

PATIENT
  Sex: Male

DRUGS (1)
  1. SKYCLARYS [Suspect]
     Active Substance: OMAVELOXOLONE
     Indication: Friedreich^s ataxia
     Route: 050
     Dates: start: 20231024

REACTIONS (3)
  - Friedreich^s ataxia [Fatal]
  - Myocardial infarction [Unknown]
  - Pneumonia aspiration [Unknown]
